FAERS Safety Report 6050241-5 (Version None)
Quarter: 2009Q1

REPORT INFORMATION
  Report Type: 
  Country: None (occurrence: None)
  Receive Date: 20090122
  Receipt Date: 20090122
  Transmission Date: 20090719
  Serious: Yes (Hospitalization)
  Sender: FDA-Public Use
  Company Number: None

PATIENT
  Age: 75 Year
  Sex: Male
  Weight: 45.3597 kg

DRUGS (1)
  1. LYRICA [Suspect]
     Indication: NEUROPATHY PERIPHERAL
     Dosage: 50MG 2 TIMES DAY PO
     Route: 048
     Dates: start: 20080114, end: 20080117

REACTIONS (6)
  - CONFUSIONAL STATE [None]
  - DYSPNOEA [None]
  - MENTAL DISORDER [None]
  - MENTAL IMPAIRMENT [None]
  - RESPIRATORY DISORDER [None]
  - SPEECH DISORDER [None]
